FAERS Safety Report 5094226-4 (Version None)
Quarter: 2006Q3

REPORT INFORMATION
  Report Type: 
  Country: None (occurrence: None)
  Receive Date: 20060831
  Receipt Date: 20060828
  Transmission Date: 20061208
  Serious: Yes (Other)
  Sender: FDA-Public Use
  Company Number: US-BRISTOL-MYERS SQUIBB COMPANY-13490305

PATIENT
  Age: 22 Year
  Sex: Male

DRUGS (4)
  1. ABILIFY [Suspect]
     Indication: SCHIZOPHRENIA, PARANOID TYPE
     Route: 048
  2. ABILIFY [Suspect]
     Indication: DEPRESSION
     Route: 048
  3. LEXAPRO [Concomitant]
  4. COGENTIN [Concomitant]

REACTIONS (1)
  - HEPATOCELLULAR DAMAGE [None]
